FAERS Safety Report 6922245-9 (Version None)
Quarter: 2010Q3

REPORT INFORMATION
  Report Type: 
  Country: None (occurrence: None)
  Receive Date: 20100813
  Receipt Date: 20100802
  Transmission Date: 20110219
  Serious: Yes (Other)
  Sender: FDA-Public Use
  Company Number: FR-JNJFOC-20100800615

PATIENT
  Age: 25 Year
  Sex: Female

DRUGS (4)
  1. REMICADE [Suspect]
     Indication: CROHN'S DISEASE
     Dosage: 6TH DOSE
     Route: 042
  2. REMICADE [Suspect]
     Route: 042
  3. TARDYFERON [Concomitant]
     Route: 048
  4. HYDROCORTISONE [Concomitant]

REACTIONS (3)
  - ECZEMA [None]
  - PRURITUS [None]
  - RASH [None]
